FAERS Safety Report 18956637 (Version 2)
Quarter: 2021Q1

REPORT INFORMATION
  Report Type: Spontaneous
  Country: US (occurrence: US)
  Receive Date: 20210302
  Receipt Date: 20210317
  Transmission Date: 20210420
  Serious: Yes (Hospitalization, Other)
  Sender: FDA-Public Use
  Company Number: US-BIOGEN-2021BI00982563

PATIENT
  Age: 5 Year
  Sex: Male
  Weight: 12 kg

DRUGS (28)
  1. APITEGROMAB. [Suspect]
     Active Substance: APITEGROMAB
     Route: 065
     Dates: start: 20191206
  2. APITEGROMAB. [Suspect]
     Active Substance: APITEGROMAB
     Route: 065
     Dates: start: 20200107
  3. APITEGROMAB. [Suspect]
     Active Substance: APITEGROMAB
     Route: 065
     Dates: start: 20200131
  4. APITEGROMAB. [Suspect]
     Active Substance: APITEGROMAB
     Route: 065
     Dates: start: 20200513
  5. APITEGROMAB. [Suspect]
     Active Substance: APITEGROMAB
     Route: 065
     Dates: start: 20200826
  6. APITEGROMAB. [Suspect]
     Active Substance: APITEGROMAB
     Route: 065
     Dates: start: 20190913
  7. APITEGROMAB. [Suspect]
     Active Substance: APITEGROMAB
     Route: 065
     Dates: start: 20191104
  8. APITEGROMAB. [Suspect]
     Active Substance: APITEGROMAB
     Route: 065
     Dates: start: 20200221
  9. APITEGROMAB. [Suspect]
     Active Substance: APITEGROMAB
     Route: 065
     Dates: start: 20200413
  10. APITEGROMAB. [Suspect]
     Active Substance: APITEGROMAB
     Route: 065
     Dates: start: 20200709
  11. APITEGROMAB. [Suspect]
     Active Substance: APITEGROMAB
     Route: 065
     Dates: start: 20201026
  12. APITEGROMAB. [Suspect]
     Active Substance: APITEGROMAB
     Route: 065
     Dates: start: 20201216
  13. BUDESONIDE. [Concomitant]
     Active Substance: BUDESONIDE
     Indication: PRODUCT USED FOR UNKNOWN INDICATION
     Route: 065
     Dates: start: 20190508
  14. LACTOBACILLUS RHAMNOSUS [Concomitant]
     Active Substance: LACTOBACILLUS RHAMNOSUS
     Indication: PRODUCT USED FOR UNKNOWN INDICATION
     Route: 065
     Dates: start: 20180710
  15. MELATONIN [Concomitant]
     Active Substance: MELATONIN
     Indication: PRODUCT USED FOR UNKNOWN INDICATION
     Route: 065
     Dates: start: 20190218
  16. SODIUM CHLORIDE. [Concomitant]
     Active Substance: SODIUM CHLORIDE
     Indication: PRODUCT USED FOR UNKNOWN INDICATION
     Route: 065
     Dates: start: 20190107
  17. APITEGROMAB. [Suspect]
     Active Substance: APITEGROMAB
     Route: 065
     Dates: start: 20191010
  18. APITEGROMAB. [Suspect]
     Active Substance: APITEGROMAB
     Route: 065
     Dates: start: 20200805
  19. APITEGROMAB. [Suspect]
     Active Substance: APITEGROMAB
     Route: 065
     Dates: start: 20200930
  20. ACETAMINOPHEN. [Concomitant]
     Active Substance: ACETAMINOPHEN
     Indication: PRODUCT USED FOR UNKNOWN INDICATION
     Route: 065
     Dates: start: 20181016
  21. CALCIUM CARBONATE. [Concomitant]
     Active Substance: CALCIUM CARBONATE
     Indication: PRODUCT USED FOR UNKNOWN INDICATION
     Route: 065
     Dates: start: 20181006
  22. SPINRAZA [Suspect]
     Active Substance: NUSINERSEN
     Indication: SPINAL MUSCULAR ATROPHY
     Route: 037
     Dates: start: 20190813
  23. APITEGROMAB. [Suspect]
     Active Substance: APITEGROMAB
     Indication: SPINAL MUSCULAR ATROPHY
     Route: 065
     Dates: start: 20190813
  24. APITEGROMAB. [Suspect]
     Active Substance: APITEGROMAB
     Route: 065
     Dates: start: 20200610
  25. SALBUTAMOL [Concomitant]
     Active Substance: ALBUTEROL
     Indication: PRODUCT USED FOR UNKNOWN INDICATION
     Route: 065
     Dates: start: 20190508
  26. IBUPROFEN. [Concomitant]
     Active Substance: IBUPROFEN
     Indication: PRODUCT USED FOR UNKNOWN INDICATION
     Route: 065
     Dates: start: 20181016
  27. POLYETHYLENE GLYCOL 3350. [Concomitant]
     Active Substance: POLYETHYLENE GLYCOL 3350
     Indication: PRODUCT USED FOR UNKNOWN INDICATION
     Route: 065
     Dates: start: 20171229
  28. APITEGROMAB. [Suspect]
     Active Substance: APITEGROMAB
     Route: 065
     Dates: start: 20201124

REACTIONS (3)
  - Hypoglycaemia [Recovered/Resolved]
  - Metabolic acidosis [Recovered/Resolved]
  - Pneumonia [Recovered/Resolved]

NARRATIVE: CASE EVENT DATE: 20201226
